FAERS Safety Report 8232719-9 (Version None)
Quarter: 2012Q1

REPORT INFORMATION
  Report Type: 
  Country: None (occurrence: None)
  Receive Date: 20120323
  Receipt Date: 20120316
  Transmission Date: 20120608
  Serious: Yes (Other)
  Sender: FDA-Public Use
  Company Number: IT-ASTRAZENECA-2012SE12779

PATIENT
  Age: 20268 Day
  Sex: Female

DRUGS (14)
  1. FLECTADOL [Suspect]
     Dosage: LOADING DOSE
     Route: 042
     Dates: start: 20120220, end: 20120220
  2. FLECTADOL [Suspect]
     Indication: ACUTE MYOCARDIAL INFARCTION
     Route: 048
     Dates: start: 20120221
  3. TORVAST (ATORVASTATIN) [Concomitant]
  4. TACHIPIRINA (PARACETAMOL) [Concomitant]
  5. PLAVIX [Suspect]
     Indication: PROPHYLAXIS
     Route: 048
     Dates: start: 20120220, end: 20120222
  6. ASPIRIN [Suspect]
     Indication: CEREBRAL ARTERY EMBOLISM
     Route: 048
     Dates: start: 20120220, end: 20120222
  7. ATROPINE [Concomitant]
     Route: 042
  8. HEPARIN SODIUM [Concomitant]
     Indication: PLATELET AGGREGATION DECREASED
  9. EMAGEL [Concomitant]
     Route: 042
  10. BRILIQUE [Suspect]
     Indication: THROMBOSIS PROPHYLAXIS
     Route: 048
     Dates: start: 20120221, end: 20120222
  11. CARVASIN (ISOSORBIDE DINITRATE) [Concomitant]
  12. PANTORC (PANTOPRAZOLE) [Concomitant]
  13. ENALAPRIL MALEATE [Concomitant]
  14. TAPAZOLE (TIAMAZOL) [Concomitant]
     Indication: ACUTE MYOCARDIAL INFARCTION

REACTIONS (3)
  - VISUAL IMPAIRMENT [None]
  - CEREBRAL HAEMORRHAGE [None]
  - HEADACHE [None]
